FAERS Safety Report 6850246-8 (Version None)
Quarter: 2010Q3

REPORT INFORMATION
  Report Type: 
  Country: None (occurrence: None)
  Receive Date: 20100716
  Receipt Date: 20071012
  Transmission Date: 20110219
  Serious: No
  Sender: FDA-Public Use
  Company Number: US-PFIZER INC-2007086827

PATIENT
  Age: 61 Year
  Sex: Female
  Weight: 71.2 kg

DRUGS (4)
  1. CHANTIX [Suspect]
     Indication: SMOKING CESSATION THERAPY
     Dates: start: 20071002
  2. METOPROLOL [Concomitant]
  3. IMDUR [Concomitant]
  4. DRUG, UNSPECIFIED [Concomitant]

REACTIONS (1)
  - BLOOD PRESSURE INCREASED [None]
